FAERS Safety Report 8211464-X (Version None)
Quarter: 2012Q1

REPORT INFORMATION
  Report Type: 
  Country: None (occurrence: None)
  Receive Date: 20120229
  Receipt Date: 20110708
  Transmission Date: 20120608
  Serious: Yes (Hospitalization, Other)
  Sender: FDA-Public Use
  Company Number: US-JNJFOC-20100506462

PATIENT
  Age: 36 Month
  Sex: Male
  Weight: 14.0615 kg

DRUGS (3)
  1. ACETAMINOPHEN [Suspect]
     Indication: EAR INFECTION
     Dosage: 192 MG, ORAL
     Route: 048
     Dates: start: 20100201, end: 20100503
  2. CHILDREN'S MOTRIN [Suspect]
     Indication: PYREXIA
     Dosage: 124 MG, ORAL
     Route: 048
     Dates: start: 20100201, end: 20100503
  3. IRON SUPPLEMENTS (IRON) [Concomitant]

REACTIONS (2)
  - GASTRITIS HAEMORRHAGIC [None]
  - PRODUCT QUALITY ISSUE [None]
